FAERS Safety Report 21481480 (Version 1)
Quarter: 2022Q4

REPORT INFORMATION
  Report Type: Spontaneous
  Country: CN (occurrence: CN)
  Receive Date: 20221019
  Receipt Date: 20221019
  Transmission Date: 20230113
  Serious: Yes (Other)
  Sender: FDA-Public Use
  Company Number: CN-BoehringerIngelheim-2022-BI-197312

PATIENT
  Age: 72 Year
  Sex: Female
  Weight: 50.000 kg

DRUGS (2)
  1. PRAMIPEXOLE [Suspect]
     Active Substance: PRAMIPEXOLE
     Indication: Restless legs syndrome
     Route: 048
     Dates: start: 20220925, end: 20220926
  2. Mianserin Hydrochloride Tablets [Concomitant]
     Indication: Insomnia
     Route: 048
     Dates: start: 20220925, end: 20220926

REACTIONS (2)
  - Hallucination [Recovering/Resolving]
  - Paraesthesia [Recovering/Resolving]

NARRATIVE: CASE EVENT DATE: 20220925
